FAERS Safety Report 6398205-6 (Version None)
Quarter: 2009Q4

REPORT INFORMATION
  Report Type: 
  Country: None (occurrence: None)
  Receive Date: 20091013
  Receipt Date: 20090929
  Transmission Date: 20100525
  Serious: Yes (Other)
  Sender: FDA-Public Use
  Company Number: PHHY2009BR42836

PATIENT
  Age: 50 Year
  Sex: Female
  Weight: 59 kg

DRUGS (3)
  1. ZELMAC [Suspect]
     Indication: CONSTIPATION
     Dosage: 6 MG, BID (1 BEFORE LUNCH AND 1 BEFORE DINNER)
     Route: 048
  2. LOSARTAN POSTASSIUM [Concomitant]
     Indication: CARDIAC DISORDER
     Dosage: 50 MG, UNK
  3. ATENOLOL [Concomitant]
     Dosage: 25MG (2 CAPSULES) DAILY
     Route: 048

REACTIONS (11)
  - ABDOMINAL DISTENSION [None]
  - CONSTIPATION [None]
  - GASTRIC OPERATION [None]
  - HIATUS HERNIA [None]
  - HYPERTENSION [None]
  - INDURATION [None]
  - INTESTINAL OBSTRUCTION [None]
  - MALAISE [None]
  - MEMORY IMPAIRMENT [None]
  - SUFFOCATION FEELING [None]
  - SWELLING [None]
